FAERS Safety Report 19930508 (Version 1)
Quarter: 2021Q4

REPORT INFORMATION
  Report Type: Spontaneous
  Country: US (occurrence: US)
  Receive Date: 20211008
  Receipt Date: 20211008
  Transmission Date: 20220303
  Serious: Yes (Other)
  Sender: FDA-Public Use
  Company Number: US-AMGEN-USASP2018187833

PATIENT

DRUGS (1)
  1. ENBREL [Suspect]
     Active Substance: ETANERCEPT
     Indication: Ankylosing spondylitis
     Dosage: UNK
     Route: 065
     Dates: start: 2006

REACTIONS (4)
  - Generalised tonic-clonic seizure [Unknown]
  - Cardiac failure [Unknown]
  - Sepsis [Unknown]
  - Iritis [Unknown]

NARRATIVE: CASE EVENT DATE: 20150101
